FAERS Safety Report 9644044 (Version 2)
Quarter: 2013Q4

REPORT INFORMATION
  Report Type: Spontaneous
  Country: LB (occurrence: None)
  Receive Date: 20131023
  Receipt Date: 20131113
  Transmission Date: 20140711
  Serious: Yes (Other)
  Sender: FDA-Public Use
  Company Number: SYM-2013-11861

PATIENT
  Age: 44 Year
  Sex: Female

DRUGS (15)
  1. 5 FU [Suspect]
     Indication: COLORECTAL CANCER METASTATIC
     Dosage: EVERY OTHER WEEK, INTRAVENOUS BOLUS
     Route: 040
     Dates: start: 20131003, end: 20131003
  2. IRINOTECAN (IRINOTECAN) (SOLUTION FOR INFUSION) (IRINOTECAN) [Suspect]
     Indication: COLORECTAL CANCER METASTATIC
     Dosage: EVERY OTHER WEEK, INTRAVENOUS (NOT OTHERWISE SPECIFIED)
     Route: 042
     Dates: start: 20131003, end: 20131003
  3. LEUCOVORIN (FOLINIC ACID) (SOLUTION FOR INFUSION) (FOLINIC ACID) [Suspect]
     Indication: COLORECTAL CANCER METASTATIC
     Dosage: EVERY OTHER WEEK, INTRAVENOUS (NOT OTHERWISE SPECIFIED)
     Route: 042
     Dates: start: 20131003, end: 20131003
  4. AFLIBERCEPT (AFLIBERCEPT) (SOLUTION FOR INFUSION) (AFLIBERCEPT) [Suspect]
     Indication: COLORECTAL CANCER METASTATIC
     Dosage: EVERY OTHER WEEK, INTRAVENOUS (NOT OTHERWISE SPECIFIED)
     Route: 042
     Dates: start: 20131003, end: 20131003
  5. AMLOR (AMLODIPINE BESILATE) (AMLODIPINE BESILATE) [Concomitant]
  6. LIPANTHYL (FENOFIBARTE) (FENOFIBRATE) [Concomitant]
  7. MICARDIS (TELMISARTAN) (TELMISARTAN) [Concomitant]
  8. GASTRIMUT (OMEPRAZOLE) (OMEPRAZOLE) [Concomitant]
  9. ZOFRAN (ONDANSETRON) (ONDANSETRON) [Concomitant]
  10. SOLU-MEDROL (METHYLPREDNISOLONE SODIUM SUCCINATE) (METHYLPREDINSOLONE SODIUM SUCCINATE) [Concomitant]
  11. KYTRILL (GRANISETRON HYDROCHLORIDE) (GRANISETRON HYDROCHLORIDE) [Concomitant]
  12. ZANTAC (RANITIDINE HYDROCHLORIDE) (RANITIDINE HYDROCHLORIDE) [Concomitant]
  13. ATROPINE (ATROPINE) (ATROPINE) [Concomitant]
  14. PARACETAMOL (PARACETAMOL) (PARACETAMOL) [Concomitant]
  15. DIOVOL (DIOVOL /00018101/) (MAGNESIUM HYDROXIDE, DIMETICONE, ALUMINIUM HYDROXIDE) [Concomitant]

REACTIONS (4)
  - Hypertension [None]
  - Flushing [None]
  - Hyperhidrosis [None]
  - Vision blurred [None]
